FAERS Safety Report 10915179 (Version 1)
Quarter: 2015Q1

REPORT INFORMATION
  Report Type: Spontaneous
  Country: BD (occurrence: BD)
  Receive Date: 20150316
  Receipt Date: 20150316
  Transmission Date: 20150721
  Serious: Yes (Life-Threatening)
  Sender: FDA-Public Use
  Company Number: BD-ROCHE-1551152

PATIENT
  Age: 40 Year
  Sex: Male
  Weight: 55 kg

DRUGS (1)
  1. MIRCERA [Suspect]
     Active Substance: PEGZEREPOETIN ALFA
     Indication: CHRONIC KIDNEY DISEASE
     Route: 058

REACTIONS (1)
  - Haemoglobin decreased [Not Recovered/Not Resolved]
